FAERS Safety Report 12660323 (Version 1)
Quarter: 2016Q3

REPORT INFORMATION
  Report Type: Report from Study
  Country: US (occurrence: US)
  Receive Date: 20160817
  Receipt Date: 20160817
  Transmission Date: 20161109
  Serious: Yes (Other)
  Sender: FDA-Public Use
  Company Number: US-ABBVIE-16P-163-1699917-00

PATIENT
  Sex: Male

DRUGS (2)
  1. MARINOL [Suspect]
     Active Substance: DRONABINOL
     Indication: PHARYNGEAL CANCER
  2. MARINOL [Suspect]
     Active Substance: DRONABINOL
     Indication: PROPHYLAXIS OF NAUSEA AND VOMITING
     Route: 065
     Dates: start: 2006, end: 2006

REACTIONS (1)
  - Oesophageal carcinoma [Not Recovered/Not Resolved]

NARRATIVE: CASE EVENT DATE: 2016
